FAERS Safety Report 22141790 (Version 2)
Quarter: 2023Q2

REPORT INFORMATION
  Report Type: Spontaneous
  Country: AU (occurrence: None)
  Receive Date: 20230327
  Receipt Date: 20230505
  Transmission Date: 20230721
  Serious: Yes (Other)
  Sender: FDA-Public Use
  Company Number: AU-ROCHE-3312804

PATIENT
  Age: 65 Year
  Sex: Male

DRUGS (4)
  1. VABYSMO [Suspect]
     Active Substance: FARICIMAB-SVOA
     Indication: Diabetic retinal oedema
     Dosage: EXPIRY DATE- OCT/2024
     Route: 050
     Dates: start: 20230208
  2. EYLEA [Concomitant]
     Active Substance: AFLIBERCEPT
     Indication: Diabetic retinopathy
     Route: 050
     Dates: start: 20150624
  3. DIABEX [Concomitant]
     Active Substance: METFORMIN HYDROCHLORIDE
     Route: 048
  4. GLICLAZIDE [Concomitant]
     Active Substance: GLICLAZIDE
     Route: 048

REACTIONS (3)
  - Macular oedema [Recovering/Resolving]
  - Visual impairment [Unknown]
  - Iridocyclitis [Recovered/Resolved]

NARRATIVE: CASE EVENT DATE: 20230217
